FAERS Safety Report 5871981-4 (Version None)
Quarter: 2008Q3

REPORT INFORMATION
  Report Type: 
  Country: None (occurrence: None)
  Receive Date: 20080905
  Receipt Date: 20080825
  Transmission Date: 20090109
  Serious: Yes (Other)
  Sender: FDA-Public Use
  Company Number: US-JNJFOC-20080701729

PATIENT
  Sex: Female
  Weight: 62.6 kg

DRUGS (4)
  1. IMODIUM A-D [Suspect]
     Route: 048
  2. IMODIUM A-D [Suspect]
     Indication: DIARRHOEA
     Route: 048
  3. SYNTHROID [Concomitant]
     Indication: THYROID DISORDER
  4. CYMBALTA [Concomitant]
     Indication: DEPRESSION

REACTIONS (2)
  - ILEUS PARALYTIC [None]
  - MUSCLE SPASMS [None]
